FAERS Safety Report 22206966 (Version 4)
Quarter: 2023Q4

REPORT INFORMATION
  Report Type: Spontaneous
  Country: JP (occurrence: JP)
  Receive Date: 20230413
  Receipt Date: 20231122
  Transmission Date: 20240109
  Serious: Yes (Other)
  Sender: FDA-Public Use
  Company Number: JP-MSD-2304JPN000489J

PATIENT
  Age: 7 Decade
  Sex: Male

DRUGS (1)
  1. KEYTRUDA [Suspect]
     Active Substance: PEMBROLIZUMAB
     Indication: Bladder cancer
     Dosage: 200 MILLIGRAM/BODY, Q3W
     Route: 041

REACTIONS (3)
  - Immune-mediated gastritis [Recovering/Resolving]
  - Gastric mucosal lesion [Recovering/Resolving]
  - Decreased appetite [Recovering/Resolving]
